FAERS Safety Report 6875575-3 (Version None)
Quarter: 2010Q3

REPORT INFORMATION
  Report Type: 
  Country: None (occurrence: None)
  Receive Date: 20100727
  Receipt Date: 20100702
  Transmission Date: 20110219
  Serious: Yes (Death, Other)
  Sender: FDA-Public Use
  Company Number: JP-JNJFOC-20100701403

PATIENT
  Age: 67 Year
  Sex: Female
  Weight: 56 kg

DRUGS (38)
  1. DOXORUBICIN HYDROCHLORIDE [Suspect]
     Indication: OVARIAN CANCER RECURRENT
     Dosage: 4 CYCLE
     Route: 042
  2. DOXORUBICIN HYDROCHLORIDE [Suspect]
     Dosage: 6 CYCLE
     Route: 042
  3. DOXORUBICIN HYDROCHLORIDE [Suspect]
     Dosage: 5 CYCLE
     Route: 042
  4. DOXORUBICIN HYDROCHLORIDE [Suspect]
     Dosage: 2  AND 3 CYCLE
     Route: 042
  5. DOXORUBICIN HYDROCHLORIDE [Suspect]
     Route: 042
  6. DOXORUBICIN HYDROCHLORIDE [Suspect]
     Dosage: 1 CYCLE
     Route: 042
  7. XYLOCAINE [Concomitant]
     Indication: PROPHYLAXIS
     Route: 042
  8. XYLOCAINE [Concomitant]
     Route: 042
  9. GENTAMICIN SULFATE [Concomitant]
     Route: 061
  10. PREDNISOLONE [Concomitant]
     Route: 048
  11. PREDNISOLONE [Concomitant]
     Dosage: ONCE DAILY OR PRN
     Route: 048
  12. BUCILLAMINE [Concomitant]
     Route: 048
  13. DECADRON [Concomitant]
     Indication: PROPHYLAXIS
     Route: 048
  14. GASMOTIN [Concomitant]
     Route: 048
  15. LOXOPROFEN [Concomitant]
     Route: 048
  16. TAKEPRON [Concomitant]
     Indication: PROPHYLAXIS
     Route: 048
  17. KINDAVATE [Concomitant]
     Indication: PROPHYLAXIS
     Route: 061
  18. HACHIAZULE [Concomitant]
     Route: 049
  19. HEPARIN [Concomitant]
     Indication: PROPHYLAXIS
     Route: 061
  20. RINGERS SOLUTION [Concomitant]
     Route: 042
  21. RINGERS SOLUTION [Concomitant]
     Route: 042
  22. CETIRIZINE HYDROCHLORIDE [Concomitant]
     Route: 048
  23. EURAX [Concomitant]
     Route: 061
  24. DAI-KENCHU-TO [Concomitant]
     Indication: PROPHYLAXIS
     Route: 048
  25. DECADRON [Concomitant]
     Route: 042
  26. DECADRON [Concomitant]
     Route: 042
  27. DECADRON [Concomitant]
     Route: 042
  28. DECADRON [Concomitant]
     Route: 042
  29. DECADRON [Concomitant]
     Route: 042
  30. DECADRON [Concomitant]
     Route: 042
  31. DECADRON [Concomitant]
     Route: 042
  32. DECADRON [Concomitant]
     Route: 042
  33. DECADRON [Concomitant]
     Route: 042
  34. DECADRON [Concomitant]
     Route: 042
  35. PRIMPERAN TAB [Concomitant]
     Indication: PROPHYLAXIS
     Route: 048
  36. PRIMPERAN TAB [Concomitant]
     Route: 048
  37. ANTEBATE [Concomitant]
     Route: 061
  38. ZOVIRAX [Concomitant]
     Indication: ECZEMA
     Route: 003

REACTIONS (2)
  - NEUROPATHY PERIPHERAL [None]
  - OVARIAN CANCER [None]
